FAERS Safety Report 14802557 (Version 1)
Quarter: 2018Q2

REPORT INFORMATION
  Report Type: Spontaneous
  Country: US (occurrence: US)
  Receive Date: 20180424
  Receipt Date: 20180424
  Transmission Date: 20180711
  Serious: No
  Sender: FDA-Public Use
  Company Number: US-TEVA-2018-US-884100

PATIENT
  Age: 61 Year
  Sex: Female

DRUGS (3)
  1. BUPRENORPHINE W/NALOXONE [Suspect]
     Active Substance: BUPRENORPHINE HYDROCHLORIDE\NALOXONE HYDROCHLORIDE
     Dosage: 2 MG/0.5 MG
     Route: 065
     Dates: end: 20180227
  2. GABAPENTIN. [Concomitant]
  3. CLONIDINE. [Concomitant]
     Active Substance: CLONIDINE

REACTIONS (9)
  - Feeding disorder [Unknown]
  - Feeling abnormal [Unknown]
  - Insomnia [Unknown]
  - Self-injurious ideation [Unknown]
  - Withdrawal syndrome [Unknown]
  - Decreased activity [Unknown]
  - Serum serotonin decreased [Unknown]
  - Asthenia [Unknown]
  - Gastrointestinal tract irritation [Unknown]
